FAERS Safety Report 8495673-0 (Version None)
Quarter: 2012Q3

REPORT INFORMATION
  Report Type: 
  Country: None (occurrence: None)
  Receive Date: 20120709
  Receipt Date: 20120706
  Transmission Date: 20120928
  Serious: No
  Sender: FDA-Public Use
  Company Number: US-PFIZER INC-2012162719

PATIENT
  Sex: Female
  Weight: 63.492 kg

DRUGS (13)
  1. SYNTHROID [Concomitant]
     Indication: HYPOTHYROIDISM
     Dosage: 125 UG, UNK
  2. LOMOTIL [Concomitant]
     Indication: DIARRHOEA
     Dosage: UNK, AS NEEDED
  3. CHANTIX [Suspect]
     Indication: SMOKING CESSATION THERAPY
     Dosage: UNK
     Route: 048
     Dates: start: 20120601, end: 20120101
  4. MAXALT [Concomitant]
     Indication: MIGRAINE
     Dosage: 5 MG, AS NEEDED
     Dates: start: 20090101
  5. PRILOSEC [Concomitant]
     Indication: GASTRIC DISORDER
     Dosage: 20 MG, 2X/DAY
  6. CYMBALTA [Concomitant]
     Indication: DEPRESSION
     Dosage: 90 MG, DAILY
  7. CHANTIX [Suspect]
     Dosage: 1 MG, 2X/DAY
     Route: 048
     Dates: start: 20120101
  8. ABILIFY [Concomitant]
     Indication: DEPRESSION
     Dosage: 5 MG, DAILY
  9. ULTRAM [Concomitant]
     Indication: MIGRAINE
     Dosage: 50 MG, UNK
     Dates: start: 20020101
  10. FEOSOL [Concomitant]
     Indication: ANAEMIA
     Dosage: 325 MG, DAILY
  11. PHENERGAN HCL [Concomitant]
     Indication: NAUSEA
     Dosage: 25 MG, AS NEEDED
     Dates: start: 19920101
  12. MOBIC [Concomitant]
     Indication: ARTHRITIS
     Dosage: 7.5 MG, 2X/DAY
     Dates: start: 20070101
  13. FLONASE [Concomitant]
     Indication: SEASONAL ALLERGY
     Dosage: UNK, AS NEEDED

REACTIONS (1)
  - DRUG INEFFECTIVE [None]
